FAERS Safety Report 21910089 (Version 1)
Quarter: 2023Q1

REPORT INFORMATION
  Report Type: Spontaneous
  Country: US (occurrence: US)
  Receive Date: 20230125
  Receipt Date: 20230125
  Transmission Date: 20230418
  Serious: Yes (Hospitalization, Other)
  Sender: FDA-Public Use
  Company Number: US-PFIZER INC-PV202300013072

PATIENT
  Age: 49 Year
  Sex: Male

DRUGS (3)
  1. CEFTAZIDIME [Suspect]
     Active Substance: CEFTAZIDIME
     Indication: Peritonitis bacterial
     Dosage: 1 G
     Route: 033
  2. CEFTAZIDIME [Suspect]
     Active Substance: CEFTAZIDIME
     Dosage: 1.5 G, DAILY
  3. CEFAZOLIN [Suspect]
     Active Substance: CEFAZOLIN
     Indication: Peritonitis bacterial
     Dosage: 1 G
     Route: 033

REACTIONS (3)
  - Drug ineffective [Recovered/Resolved]
  - Pyrexia [Unknown]
  - Abdominal pain [Unknown]
